FAERS Safety Report 4965444-8 (Version None)
Quarter: 2006Q1

REPORT INFORMATION
  Report Type: 
  Country: None (occurrence: None)
  Receive Date: 20060201
  Receipt Date: 20051228
  Transmission Date: 20060701
  Serious: No
  Sender: FDA-Public Use
  Company Number: 2005PV006305

PATIENT
  Age: 60 Year
  Sex: Female
  Weight: 102.0593 kg

DRUGS (9)
  1. BYETTA [Suspect]
     Indication: DIABETES MELLITUS NON-INSULIN-DEPENDENT
     Dosage: 5 MCG; BID; SC
     Route: 058
     Dates: start: 20051125, end: 20051219
  2. ACTOS [Concomitant]
  3. GLIPIZIDE [Concomitant]
  4. NORVASC [Concomitant]
  5. BENICAR [Concomitant]
  6. ASPIRIN [Concomitant]
  7. CENTRUM SILVER [Concomitant]
  8. CALCIUM GLUCONATE [Concomitant]
  9. FISH OIL [Concomitant]

REACTIONS (4)
  - DECREASED APPETITE [None]
  - NAUSEA [None]
  - VOMITING [None]
  - WEIGHT DECREASED [None]
